FAERS Safety Report 23296857 (Version 1)
Quarter: 2023Q4

REPORT INFORMATION
  Report Type: Spontaneous
  Country: US (occurrence: US)
  Receive Date: 20231214
  Receipt Date: 20231214
  Transmission Date: 20240109
  Serious: Yes (Hospitalization, Other)
  Sender: FDA-Public Use
  Company Number: US-ASTELLAS-2023US034960

PATIENT
  Age: 78 Year
  Sex: Male

DRUGS (15)
  1. PADCEV [Suspect]
     Active Substance: ENFORTUMAB VEDOTIN-EJFV
     Indication: Bladder cancer
     Dosage: 0.5 MG/KG, CYCLIC (WEEKLY FOR 3 WEEKS ON, 1 WEEK OF EVERY 28 DAYS)
     Route: 042
     Dates: start: 20231005, end: 20231005
  2. PADCEV [Suspect]
     Active Substance: ENFORTUMAB VEDOTIN-EJFV
     Dosage: 0.5 MG/KG, CYCLIC (WEEKLY FOR 3 WEEKS ON, 1 WEEK OF EVERY 28 DAYS)
     Route: 042
     Dates: start: 20231012, end: 20231012
  3. PADCEV [Suspect]
     Active Substance: ENFORTUMAB VEDOTIN-EJFV
     Dosage: 1.25 MG/KG, CYCLIC (WEEKLY FOR 3 WEEKS ON, 1 WEEK OF EVERY 28 DAYS)
     Route: 042
     Dates: start: 20231019, end: 20231019
  4. PADCEV [Suspect]
     Active Substance: ENFORTUMAB VEDOTIN-EJFV
     Dosage: 1.25 MG/KG, CYCLIC (WEEKLY FOR 3 WEEKS ON, 1 WEEK OF EVERY 28 DAYS)
     Route: 042
     Dates: start: 20231102, end: 20231102
  5. PADCEV [Suspect]
     Active Substance: ENFORTUMAB VEDOTIN-EJFV
     Dosage: 1.25 MG/KG, CYCLIC (WEEKLY FOR 3 WEEKS ON, 1 WEEK OF EVERY 28 DAYS)
     Route: 042
     Dates: start: 20231109, end: 20231109
  6. MONTELUKAST [Concomitant]
     Active Substance: MONTELUKAST SODIUM
     Indication: Product used for unknown indication
     Dosage: UNK UNK, UNKNOWN FREQ. (30 TAB)
     Route: 065
     Dates: start: 20230519, end: 20231103
  7. FUROSEMIDE [Concomitant]
     Active Substance: FUROSEMIDE
     Indication: Product used for unknown indication
     Dosage: UNK UNK, UNKNOWN FREQ. (30 TAB)
     Route: 065
     Dates: start: 20230825, end: 20231102
  8. CISPLATIN [Concomitant]
     Active Substance: CISPLATIN
     Indication: Product used for unknown indication
     Dosage: UNK UNK, UNKNOWN FREQ.
     Route: 065
     Dates: start: 202308
  9. GEMCITABINE [Concomitant]
     Active Substance: GEMCITABINE
     Indication: Product used for unknown indication
     Dosage: UNK UNK, UNKNOWN FREQ.
     Route: 065
     Dates: start: 202308
  10. DULOXETINE [Concomitant]
     Active Substance: DULOXETINE
     Indication: Product used for unknown indication
     Dosage: UNK UNK, UNKNOWN FREQ.
     Route: 065
     Dates: start: 202310
  11. ACETAMINOPHEN\HYDROCODONE [Concomitant]
     Active Substance: ACETAMINOPHEN\HYDROCODONE
     Indication: Pain
     Dosage: 1 TAB, EVERY 6 HOURS AS NEEDED
     Route: 065
     Dates: start: 20231024, end: 20231025
  12. PREDNISONE [Concomitant]
     Active Substance: PREDNISONE
     Indication: Myasthenia gravis
     Route: 065
  13. PREDNISONE [Concomitant]
     Active Substance: PREDNISONE
     Route: 065
  14. PYRIDOSTIGMINE [Concomitant]
     Active Substance: PYRIDOSTIGMINE
     Indication: Myasthenia gravis
     Dosage: UNK UNK, UNKNOWN FREQ.
     Route: 065
  15. DRONEDARONE [Concomitant]
     Active Substance: DRONEDARONE
     Indication: Product used for unknown indication
     Dosage: UNK UNK, UNKNOWN FREQ. (60 TAB)
     Route: 065
     Dates: start: 20230908, end: 20231019

REACTIONS (10)
  - Drug reaction with eosinophilia and systemic symptoms [Recovering/Resolving]
  - Stevens-Johnson syndrome [Recovering/Resolving]
  - Pneumonia aspiration [Unknown]
  - Cardiac arrest [Unknown]
  - Ventricular tachycardia [Unknown]
  - Toxic erythema of chemotherapy [Recovering/Resolving]
  - Symmetrical drug-related intertriginous and flexural exanthema [Recovering/Resolving]
  - Renal disorder [Unknown]
  - Liver disorder [Unknown]
  - Underdose [Unknown]

NARRATIVE: CASE EVENT DATE: 20231005
